FAERS Safety Report 5748297-X (Version None)
Quarter: 2008Q2

REPORT INFORMATION
  Report Type: 
  Country: None (occurrence: None)
  Receive Date: 20080523
  Receipt Date: 20080519
  Transmission Date: 20081010
  Serious: Yes (Other)
  Sender: FDA-Public Use
  Company Number: US-PFIZER INC-2008011368

PATIENT
  Sex: Male
  Weight: 112.27 kg

DRUGS (8)
  1. LIPITOR [Suspect]
     Indication: HYPERLIPIDAEMIA
     Route: 048
  2. TOPROL-XL [Concomitant]
  3. ACETYLSALICYLIC ACID SRT [Concomitant]
     Dosage: DAILY DOSE:81MG-FREQ:DAILY
  4. AVODART [Concomitant]
     Dosage: DAILY DOSE:.5MG-FREQ:DAILY
  5. FISH OIL [Concomitant]
     Dosage: FREQ:ONE DAILY
  6. FLUOXETINE [Concomitant]
     Dosage: DAILY DOSE:20MG-FREQ:DAILY
  7. CHONDROITIN/GLUCOSAMINE [Concomitant]
  8. NITROSTAT [Concomitant]
     Dosage: TEXT:1/150
     Route: 060

REACTIONS (4)
  - GLOSSODYNIA [None]
  - MUSCLE SPASMS [None]
  - TONGUE DISCOLOURATION [None]
  - TONGUE DISORDER [None]
